FAERS Safety Report 15070266 (Version 1)
Quarter: 2018Q2

REPORT INFORMATION
  Report Type: Spontaneous
  Country: CA (occurrence: CA)
  Receive Date: 20180626
  Receipt Date: 20180626
  Transmission Date: 20180711
  Serious: Yes (Other)
  Sender: FDA-Public Use
  Company Number: CA-PFIZER INC-2018224505

PATIENT
  Age: 79 Year
  Sex: Female

DRUGS (10)
  1. CALCIUM [Concomitant]
     Active Substance: CALCIUM
     Dosage: UNK UNK, AS NEEDED
  2. NASACORT [Concomitant]
     Active Substance: TRIAMCINOLONE ACETONIDE
     Indication: HYPERSENSITIVITY
  3. HYDROXYCHLOROQUINE [Concomitant]
     Active Substance: HYDROXYCHLOROQUINE
     Dosage: 200 MG, 2X/DAY
  4. VITAMIN D /00107901/ [Concomitant]
     Active Substance: ERGOCALCIFEROL
     Dosage: UNK UNK, AS NEEDED
  5. METHOTREXATE SODIUM. [Suspect]
     Active Substance: METHOTREXATE SODIUM
     Dosage: 20 MG, UNK
     Route: 058
  6. XELJANZ [Concomitant]
     Active Substance: TOFACITINIB CITRATE
     Indication: RHEUMATOID ARTHRITIS
     Dosage: 5 MG, 2X/DAY
     Route: 048
     Dates: start: 20180618
  7. FOLIC ACID. [Concomitant]
     Active Substance: FOLIC ACID
     Dosage: UNK UNK, AS NEEDED
  8. RAMIPRIL. [Concomitant]
     Active Substance: RAMIPRIL
     Indication: BLOOD PRESSURE MEASUREMENT
     Dosage: UNK UNK, 1X/DAY
  9. APO-HYDRO [Concomitant]
     Active Substance: HYDROCHLOROTHIAZIDE
     Dosage: UNK UNK, 1X/DAY (AM)
  10. NASACORT [Concomitant]
     Active Substance: TRIAMCINOLONE ACETONIDE
     Indication: SINUS DISORDER
     Dosage: UNK

REACTIONS (12)
  - Bladder prolapse [Unknown]
  - Insomnia [Unknown]
  - Diarrhoea [Not Recovered/Not Resolved]
  - Rectal haemorrhage [Not Recovered/Not Resolved]
  - Drug intolerance [Unknown]
  - Dyspepsia [Unknown]
  - Arthralgia [Unknown]
  - Haemorrhoids [Unknown]
  - Pain in extremity [Unknown]
  - Skin erosion [Unknown]
  - Skin burning sensation [Unknown]
  - Abdominal pain [Not Recovered/Not Resolved]

NARRATIVE: CASE EVENT DATE: 20180613
